FAERS Safety Report 10585556 (Version 1)
Quarter: 2014Q4

REPORT INFORMATION
  Report Type: Spontaneous
  Country: SA (occurrence: None)
  Receive Date: 20141113
  Receipt Date: 20141113
  Transmission Date: 20150529
  Serious: Yes (Hospitalization)
  Sender: FDA-Public Use
  Company Number: INT_00510_2014

PATIENT
  Age: 64 Year
  Sex: Female

DRUGS (2)
  1. DOXORUBICIN (DOXORUBICIN) [Suspect]
     Active Substance: DOXORUBICIN
     Indication: OVARIAN GRANULOSA CELL TUMOUR
     Dosage: ALLOWED TO CIRCULATE IN THE ABDOMINOPELVIC CAVITY FOR 90 MINS AT 41.0-42.2 DEGREES C)
  2. CISPLATIN (HQ SPECIALTY) [Suspect]
     Active Substance: CISPLATIN
     Indication: OVARIAN GRANULOSA CELL TUMOUR
     Dosage: ALLOWED TO CIRCULATE IN THE ABDOMINIOPELVIC CAVITY FOR 90 MINES AT 41.0-42.2 DEGREES C)

REACTIONS (4)
  - Pulmonary embolism [None]
  - White blood cell count decreased [None]
  - Post procedural complication [None]
  - Anaemia [None]
